FAERS Safety Report 26198915 (Version 1)
Quarter: 2025Q4

REPORT INFORMATION
  Report Type: Spontaneous
  Country: US (occurrence: US)
  Receive Date: 20251225
  Receipt Date: 20251225
  Transmission Date: 20260118
  Serious: Yes (Death, Life-Threatening, Hospitalization)
  Sender: TEVA
  Company Number: US-TEVA-VS-3404183

PATIENT
  Age: 50 Year
  Sex: Female

DRUGS (4)
  1. EPINEPHRINE [Suspect]
     Active Substance: EPINEPHRINE
     Indication: Hypotension
     Route: 065
  2. BETAMETHASONE\INDOMETHACIN\METHOCARBAMOL [Suspect]
     Active Substance: BETAMETHASONE\INDOMETHACIN\METHOCARBAMOL
     Indication: Product used for unknown indication
     Dosage: PILL FOR SEVERAL YEARS, CONTAINING BETAMETHASONE 0.75 MG
     Route: 065
  3. VASOPRESSIN [Suspect]
     Active Substance: VASOPRESSIN
     Indication: Hypotension
     Route: 065
  4. NOREPINEPHRINE [Suspect]
     Active Substance: NOREPINEPHRINE
     Indication: Hypotension
     Route: 065

REACTIONS (3)
  - Tertiary adrenal insufficiency [Fatal]
  - Drug ineffective [Unknown]
  - Multiple organ dysfunction syndrome [Fatal]
